FAERS Safety Report 8986216 (Version 1)
Quarter: 2012Q4

REPORT INFORMATION
  Report Type: 
  Country: CA (occurrence: CA)
  Receive Date: 20121227
  Receipt Date: 20121227
  Transmission Date: 20130627
  Serious: Yes (Hospitalization, Other)
  Sender: FDA-Public Use
  Company Number: CA-BAYER-2012-133532

PATIENT
  Age: 19 Year
  Sex: Female

DRUGS (5)
  1. BETASERON [Suspect]
     Indication: MULTIPLE SCLEROSIS
     Dosage: 0.25 mg, UNK
     Dates: start: 20081125
  2. TOPAMAX [Concomitant]
  3. IMITREX [Concomitant]
  4. ADVIL [Concomitant]
     Dosage: UNK UNK, PRN
  5. TYLENOL [Concomitant]
     Dosage: UNK UNK, PRN

REACTIONS (8)
  - Migraine [Recovered/Resolved]
  - Vomiting [Recovered/Resolved]
  - Multiple sclerosis relapse [None]
  - Multiple sclerosis relapse [Recovering/Resolving]
  - Hypoaesthesia [Recovering/Resolving]
  - Mobility decreased [Recovering/Resolving]
  - Gait disturbance [Recovering/Resolving]
  - Pain [Recovered/Resolved]
